FAERS Safety Report 8322617-4 (Version None)
Quarter: 2012Q2

REPORT INFORMATION
  Report Type: 
  Country: None (occurrence: None)
  Receive Date: 20120430
  Receipt Date: 20120419
  Transmission Date: 20120825
  Serious: Yes (Other)
  Sender: FDA-Public Use
  Company Number: AU-PFIZER INC-2012099706

PATIENT
  Age: 12 Year
  Sex: Male

DRUGS (6)
  1. LEVETIRACETAM [Suspect]
  2. PHENYTOIN [Suspect]
  3. VALPROATE SODIUM [Suspect]
     Dosage: UNK
  4. CLONAZEPAM [Suspect]
  5. LAMOTRIGINE [Suspect]
     Dosage: UNK
  6. CLOBAZAM [Suspect]

REACTIONS (2)
  - STATUS EPILEPTICUS [None]
  - DRUG INEFFECTIVE [None]
